FAERS Safety Report 5365544-7 (Version None)
Quarter: 2007Q2

REPORT INFORMATION
  Report Type: 
  Country: None (occurrence: None)
  Receive Date: 20070621
  Receipt Date: 20070614
  Transmission Date: 20071010
  Serious: Yes (Other)
  Sender: FDA-Public Use
  Company Number: B0471625A

PATIENT
  Sex: Male
  Weight: 76 kg

DRUGS (2)
  1. AVODART [Suspect]
     Indication: BENIGN PROSTATIC HYPERPLASIA
     Dosage: .5MG PER DAY
     Route: 048
     Dates: start: 20061101, end: 20070516
  2. OMNIC [Concomitant]
     Indication: BENIGN PROSTATIC HYPERPLASIA
     Dates: start: 20060301

REACTIONS (4)
  - GAIT DISTURBANCE [None]
  - HYPOREFLEXIA [None]
  - NEUROPATHY [None]
  - POLYNEUROPATHY [None]
